FAERS Safety Report 12909404 (Version 2)
Quarter: 2016Q4

REPORT INFORMATION
  Report Type: Report from Study
  Country: US (occurrence: US)
  Receive Date: 20161104
  Receipt Date: 20161121
  Transmission Date: 20170207
  Serious: Yes (Death)
  Sender: FDA-Public Use
  Company Number: US-CIPLA LTD.-2016US20594

PATIENT

DRUGS (4)
  1. IRINOTECAN [Suspect]
     Active Substance: IRINOTECAN
     Indication: PANCREATIC CARCINOMA
     Dosage: 180 MG/M2, ON DAY 1 EVERY 14 DAYS FOR TOTAL OF 4 TREATMENTS
     Route: 042
  2. NEULASTA [Concomitant]
     Active Substance: PEGFILGRASTIM
     Dosage: 6 MG, ON DAY 3 EVERY 14 DAYS FOR TOTAL OF 4 TREATMENTS
     Route: 058
  3. OXALIPLATIN. [Suspect]
     Active Substance: OXALIPLATIN
     Indication: PANCREATIC CARCINOMA
     Dosage: 85 MG/M2, ON DAY 1 EVERY 14 DAYS FOR TOTAL OF 4 TREATMENTS
     Route: 042
  4. FLUOROURACIL. [Suspect]
     Active Substance: FLUOROURACIL
     Indication: PANCREATIC CARCINOMA
     Dosage: 2400 MG/M2, OVER 46 H AS A CONTINUOUS INFUSION ON DAYS 1 TO 3 EVERY 14 DAYS FOR TOTAL OF 4 TREATMENT
     Route: 042

REACTIONS (1)
  - Disease progression [Fatal]
